FAERS Safety Report 5487086-0 (Version None)
Quarter: 2007Q4

REPORT INFORMATION
  Report Type: 
  Country: None (occurrence: None)
  Receive Date: 20071016
  Receipt Date: 20071002
  Transmission Date: 20080405
  Serious: Yes (Other)
  Sender: FDA-Public Use
  Company Number: CA-SHR-CA-2007-037077

PATIENT
  Age: 29 Year
  Sex: Male
  Weight: 102 kg

DRUGS (1)
  1. BETASERON [Suspect]
     Indication: SECONDARY PROGRESSIVE MULTIPLE SCLEROSIS
     Dosage: 8 MIU, EVERY 2D
     Route: 058
     Dates: start: 20050628

REACTIONS (3)
  - INFECTION [None]
  - KIDNEY INFECTION [None]
  - MEDICAL DEVICE COMPLICATION [None]
